FAERS Safety Report 16781781 (Version 1)
Quarter: 2019Q3

REPORT INFORMATION
  Report Type: Report from Study
  Country: CA (occurrence: CA)
  Receive Date: 20190906
  Receipt Date: 20190906
  Transmission Date: 20191005
  Serious: Yes (Other)
  Sender: FDA-Public Use
  Company Number: CA-BIOGEN-2019BI00706115

PATIENT
  Sex: Female

DRUGS (2)
  1. OXYBUTIN [Concomitant]
     Active Substance: OXYBUTYNIN
     Indication: URINARY TRACT DISORDER
     Route: 065
  2. TYSABRI [Suspect]
     Active Substance: NATALIZUMAB
     Indication: MULTIPLE SCLEROSIS
     Dosage: INFUSED OVER 1 HOUR
     Route: 042
     Dates: start: 20131010

REACTIONS (8)
  - Spinal osteoarthritis [Unknown]
  - Back pain [Not Recovered/Not Resolved]
  - Musculoskeletal disorder [Unknown]
  - Headache [Unknown]
  - Anxiety [Unknown]
  - Gait disturbance [Unknown]
  - Asthenia [Unknown]
  - Urinary tract disorder [Unknown]
